FAERS Safety Report 5118006-6 (Version None)
Quarter: 2006Q3

REPORT INFORMATION
  Report Type: 
  Country: None (occurrence: None)
  Receive Date: 20060928
  Receipt Date: 20060928
  Transmission Date: 20061208
  Serious: Yes (Disabling)
  Sender: FDA-Public Use
  Company Number: None

PATIENT
  Age: 68 Year
  Sex: Female

DRUGS (2)
  1. ASPIRIN [Suspect]
     Indication: CORONARY ARTERY DISEASE
     Dosage: 20.25MG ONCE PO
     Route: 048
     Dates: start: 20060606, end: 20060606
  2. ASPIRIN [Suspect]
     Indication: PROPHYLAXIS
     Dosage: 20.25MG ONCE PO
     Route: 048
     Dates: start: 20060606, end: 20060606

REACTIONS (1)
  - PRURITUS [None]
